FAERS Safety Report 23270803 (Version 4)
Quarter: 2024Q4

REPORT INFORMATION
  Report Type: Spontaneous
  Country: CA (occurrence: CA)
  Receive Date: 20231207
  Receipt Date: 20241008
  Transmission Date: 20250114
  Serious: Yes (Other)
  Sender: JOHNSON AND JOHNSON
  Company Number: CA-VIIV HEALTHCARE LIMITED-CA2023097036

PATIENT
  Age: 67 Year
  Sex: Male
  Weight: 71.67 kg

DRUGS (11)
  1. RILPIVIRINE [Suspect]
     Active Substance: RILPIVIRINE
     Indication: HIV infection
     Dosage: UNK UNK, MO 1 AND 2 INJ 3ML(600/900MG) 1 MONTH APART, CONTINUATION INJ^S 2 MONTHS APART
     Route: 030
     Dates: start: 20230615
  2. RILPIVIRINE [Suspect]
     Active Substance: RILPIVIRINE
     Dosage: UNK UNK, MO MO 1 AND 2 INJ 3ML(600/900MG) 1 MONTH APART, CONTINUATION INJ^S 2 MONTHS APART
     Route: 030
     Dates: start: 20230719
  3. RILPIVIRINE [Suspect]
     Active Substance: RILPIVIRINE
     Dosage: UNK UNK, Q2M,(600MG/3ML) CABOTEGRAVIR INJECTION AND (900MG/3ML) RILPIVIRINE INJECTION
     Route: 030
     Dates: start: 2023
  4. RILPIVIRINE [Suspect]
     Active Substance: RILPIVIRINE
     Dosage: UNK UNK, Q2M (600MG/3ML) CABOTEGRAVIR INJECTION AND (900MG/3ML) RILPIVIRINE INJECTION
     Route: 030
  5. RILPIVIRINE [Suspect]
     Active Substance: RILPIVIRINE
     Dosage: UNK UNK, Q2M CABOTEGRAVIR 600MG/3ML RILPIVIRINE 900MG/3ML
     Route: 030
  6. CABOTEGRAVIR [Suspect]
     Active Substance: CABOTEGRAVIR
     Indication: HIV infection
     Dosage: UNK UNK, MO 1 AND 2 INJ 3ML(600/900MG) 1 MONTH APART, CONTINUATION INJ^S 2 MONTHS APART
     Route: 030
     Dates: start: 20230615
  7. CABOTEGRAVIR [Suspect]
     Active Substance: CABOTEGRAVIR
     Dosage: UNK UNK, MO MO 1 AND 2 INJ 3ML(600/900MG) 1 MONTH APART, CONTINUATION INJ^S 2 MONTHS APART
     Route: 030
     Dates: start: 20230719
  8. CABOTEGRAVIR [Suspect]
     Active Substance: CABOTEGRAVIR
     Dosage: UNK UNK, Q2M,(600MG/3ML) CABOTEGRAVIR INJECTION AND (900MG/3ML) RILPIVIRINE INJECTION
     Route: 030
  9. CABOTEGRAVIR [Suspect]
     Active Substance: CABOTEGRAVIR
     Dosage: UNK UNK, Q2M (600MG/3ML) CABOTEGRAVIR INJECTION AND (900MG/3ML) RILPIVIRINE INJECTION
     Route: 030
  10. CABOTEGRAVIR [Suspect]
     Active Substance: CABOTEGRAVIR
     Dosage: UNK UNK, Q2M CABOTEGRAVIR 600MG/3ML RILPIVIRINE 900MG/3ML
     Route: 030
  11. COVID-19 VACCINE NOS [Suspect]
     Active Substance: COVID-19 VACCINE
     Indication: Prophylaxis
     Dosage: UNK
     Route: 065

REACTIONS (20)
  - Spinal cord injury [Unknown]
  - Physical assault [Unknown]
  - Injection site mass [Not Recovered/Not Resolved]
  - Injection site swelling [Unknown]
  - Injection site discomfort [Unknown]
  - Injection site pain [Unknown]
  - Mouth injury [Recovering/Resolving]
  - Head injury [Recovering/Resolving]
  - Musculoskeletal pain [Unknown]
  - Movement disorder [Unknown]
  - Dizziness [Recovering/Resolving]
  - Peripheral swelling [Not Recovered/Not Resolved]
  - Fall [Unknown]
  - Illness [Unknown]
  - Rhinorrhoea [Unknown]
  - Insomnia [Unknown]
  - Chest pain [Unknown]
  - Cough [Unknown]
  - Influenza like illness [Recovered/Resolved]
  - Malaise [Recovered/Resolved]

NARRATIVE: CASE EVENT DATE: 20230719
